FAERS Safety Report 13424795 (Version 4)
Quarter: 2017Q2

REPORT INFORMATION
  Report Type: Report from Study
  Country: US (occurrence: US)
  Receive Date: 20170410
  Receipt Date: 20170606
  Transmission Date: 20170830
  Serious: Yes (Death, Hospitalization, Other)
  Sender: FDA-Public Use
  Company Number: US-ACTELION-A-NJ2017-148259

PATIENT
  Age: 65 Year
  Sex: Female
  Weight: 46.26 kg

DRUGS (2)
  1. REGLAN [Concomitant]
     Active Substance: METOCLOPRAMIDE HYDROCHLORIDE
  2. VELETRI [Suspect]
     Active Substance: EPOPROSTENOL
     Indication: PULMONARY ARTERIAL HYPERTENSION
     Dosage: 15 NG/KG, PER MIN
     Route: 042
     Dates: start: 20161208

REACTIONS (18)
  - Death [Fatal]
  - Pain in jaw [Unknown]
  - Oropharyngeal pain [Unknown]
  - Cough [Unknown]
  - Dyspnoea exertional [Unknown]
  - Acute respiratory failure [Unknown]
  - Diarrhoea [Unknown]
  - Pulmonary arterial pressure decreased [Unknown]
  - Cerebrovascular accident [Unknown]
  - Vertigo [Unknown]
  - Blood pressure increased [Unknown]
  - Catheterisation cardiac [Unknown]
  - Memory impairment [Unknown]
  - Dizziness [Unknown]
  - Dyspnoea [Unknown]
  - Fall [Unknown]
  - Head injury [Unknown]
  - Lacrimation increased [Unknown]

NARRATIVE: CASE EVENT DATE: 20170206
